FAERS Safety Report 9809096 (Version 3)
Quarter: 2014Q1

REPORT INFORMATION
  Report Type: Report from Study
  Country: US (occurrence: US)
  Receive Date: 20140110
  Receipt Date: 20140219
  Transmission Date: 20141002
  Serious: Yes (Life-Threatening, Hospitalization, Other)
  Sender: FDA-Public Use
  Company Number: PHEH2013US014522

PATIENT
  Age: 16 Year
  Sex: Male

DRUGS (14)
  1. AFINITOR [Suspect]
     Indication: BRAIN NEOPLASM BENIGN
     Dosage: 3 MG, QD
     Route: 048
     Dates: start: 20110416
  2. AFINITOR [Suspect]
     Dosage: 5 MG, QOD
     Route: 048
  3. CALCIUM [Concomitant]
  4. MULTIVITAMIN//VITAMINS NOS [Concomitant]
     Dosage: 1 DF, QD
     Route: 048
  5. KEPPRA [Concomitant]
     Indication: CONVULSION
  6. KEPPRA [Concomitant]
     Dosage: 12.5 MG, BID
     Route: 048
  7. BACTRIM [Concomitant]
  8. ZANTAC [Concomitant]
  9. CARNITINE [Concomitant]
     Indication: KETOGENIC DIET
     Dosage: 300 MG, BID
     Route: 048
  10. DIASTAT//DIAZEPAM [Concomitant]
     Indication: CONVULSION
     Dosage: 7.5 MG, PRN
     Route: 048
  11. MIRALAX [Concomitant]
     Indication: CONSTIPATION
     Dosage: 17 MG, QD
     Route: 048
  12. NEXIUM 1-2-3 [Concomitant]
     Indication: GASTROOESOPHAGEAL REFLUX DISEASE
     Dosage: 20 MG, QD
     Route: 048
  13. VIMPAT [Concomitant]
     Indication: CONVULSION
     Dosage: 5 MG, UNK
  14. VIMPAT [Concomitant]
     Dosage: 7 MG, UNK

REACTIONS (9)
  - Respiratory arrest [Recovered/Resolved]
  - Cyanosis [Recovered/Resolved]
  - Convulsion [Unknown]
  - Pneumonia [Recovering/Resolving]
  - Facial pain [Unknown]
  - Hypopnoea [Unknown]
  - Cough [Unknown]
  - Pyrexia [Unknown]
  - Vomiting [Unknown]
